FAERS Safety Report 10074660 (Version 1)
Quarter: 2014Q2

REPORT INFORMATION
  Report Type: Spontaneous
  Country: CN (occurrence: CN)
  Receive Date: 20140414
  Receipt Date: 20140414
  Transmission Date: 20141212
  Serious: Yes (Other)
  Sender: FDA-Public Use
  Company Number: CN-009507513-1404CHN006508

PATIENT
  Age: 91 Year
  Sex: Male
  Weight: 55 kg

DRUGS (1)
  1. TIENAM [Suspect]
     Indication: INFECTION
     Dosage: 1.5G TOTAL DAILY, TID
     Route: 041
     Dates: start: 20130129, end: 20130131

REACTIONS (1)
  - Epilepsy [Recovering/Resolving]
